FAERS Safety Report 15640736 (Version 1)
Quarter: 2018Q4

REPORT INFORMATION
  Report Type: Spontaneous
  Country: JP (occurrence: JP)
  Receive Date: 20181120
  Receipt Date: 20181120
  Transmission Date: 20190205
  Serious: Yes (Hospitalization)
  Sender: FDA-Public Use
  Company Number: JP-ELI_LILLY_AND_COMPANY-JP201810014791

PATIENT
  Age: 85 Year
  Sex: Male

DRUGS (7)
  1. ARTIST [Concomitant]
     Active Substance: CARVEDILOL
  2. FAMOTIDINE. [Concomitant]
     Active Substance: FAMOTIDINE
  3. BAYASPIRIN [Concomitant]
     Active Substance: ASPIRIN
  4. CLOPIDOGREL [Concomitant]
     Active Substance: CLOPIDOGREL BISULFATE
  5. TRULICITY [Suspect]
     Active Substance: DULAGLUTIDE
     Indication: DIABETES MELLITUS
     Dosage: 0.75 MG, WEEKLY (1/W)
     Route: 058
     Dates: start: 20171220
  6. CRESTOR [Concomitant]
     Active Substance: ROSUVASTATIN CALCIUM
  7. LANIRAPID [Concomitant]
     Active Substance: METILDIGOXIN

REACTIONS (2)
  - Pancreatic carcinoma [Unknown]
  - Pancreatic enlargement [Unknown]

NARRATIVE: CASE EVENT DATE: 20180621
